FAERS Safety Report 7583909-X (Version None)
Quarter: 2011Q2

REPORT INFORMATION
  Report Type: 
  Country: None (occurrence: None)
  Receive Date: 20110623
  Receipt Date: 20110607
  Transmission Date: 20111010
  Serious: Yes (Hospitalization, Other)
  Sender: FDA-Public Use
  Company Number: 2011P1006551

PATIENT
  Age: 53 Year
  Sex: Male
  Weight: 86.1834 kg

DRUGS (2)
  1. CETIRIZINE HYDROCHLORIDE [Suspect]
     Indication: MULTIPLE ALLERGIES
     Dosage: 10 MG, QD, PO
     Route: 048
     Dates: start: 20110510, end: 20110517
  2. IBUPROFEN (ADVIL) [Concomitant]

REACTIONS (4)
  - NAUSEA [None]
  - LOSS OF CONSCIOUSNESS [None]
  - DIZZINESS [None]
  - FALL [None]
